FAERS Safety Report 9691845 (Version 1)
Quarter: 2013Q4

REPORT INFORMATION
  Report Type: Spontaneous
  Country: FR (occurrence: FR)
  Receive Date: 20131117
  Receipt Date: 20131117
  Transmission Date: 20140711
  Serious: Yes (Life-Threatening, Other)
  Sender: FDA-Public Use
  Company Number: FR-ASTRAZENECA-2013SE83748

PATIENT
  Age: 664 Month
  Sex: Male

DRUGS (2)
  1. CAPRELSA [Suspect]
     Indication: MEDULLARY THYROID CANCER
     Route: 048
     Dates: start: 20130516
  2. CAPRELSA [Suspect]
     Indication: MEDULLARY THYROID CANCER
     Route: 048
     Dates: start: 20130625, end: 20130726

REACTIONS (8)
  - Supraventricular tachycardia [Unknown]
  - Cardiac failure [Unknown]
  - Dyspnoea [Unknown]
  - Asthenia [Unknown]
  - Weight decreased [Unknown]
  - Nausea [Unknown]
  - Diarrhoea [Unknown]
  - Therapy cessation [Unknown]
